FAERS Safety Report 7075676-3 (Version None)
Quarter: 2010Q4

REPORT INFORMATION
  Report Type: 
  Country: None (occurrence: None)
  Receive Date: 20101031
  Receipt Date: 20101027
  Transmission Date: 20110411
  Serious: Yes (Hospitalization, Other)
  Sender: FDA-Public Use
  Company Number: US-WYE-H18410510

PATIENT
  Sex: Female

DRUGS (2)
  1. PRISTIQ [Suspect]
     Dosage: UKNOWN
     Route: 048
  2. HEPARIN [Interacting]
     Dosage: UNKNOWN
     Route: 065
     Dates: start: 20101001

REACTIONS (6)
  - DRUG INTERACTION [None]
  - GASTROINTESTINAL HAEMORRHAGE [None]
  - ILEOSTOMY [None]
  - INJECTION SITE HAEMATOMA [None]
  - MEDICATION RESIDUE [None]
  - SMALL INTESTINAL RESECTION [None]
